FAERS Safety Report 12669718 (Version 1)
Quarter: 2016Q3

REPORT INFORMATION
  Report Type: Spontaneous
  Country: US (occurrence: US)
  Receive Date: 20160819
  Receipt Date: 20160819
  Transmission Date: 20161109
  Serious: Yes (Hospitalization)
  Sender: FDA-Public Use
  Company Number: US-SMITH AND NEPHEW, INC-2016SMT00677

PATIENT
  Age: 85 Year
  Sex: Female
  Weight: 51.25 kg

DRUGS (7)
  1. DIGOXIN. [Concomitant]
     Active Substance: DIGOXIN
  2. ASPIRIN. [Concomitant]
     Active Substance: ASPIRIN
  3. REGRANEX [Suspect]
     Active Substance: BECAPLERMIN
     Indication: WOUND
     Dosage: UNK
     Dates: start: 20160715, end: 20160717
  4. PLAVIX [Concomitant]
     Active Substance: CLOPIDOGREL BISULFATE
  5. NEURONTIN [Concomitant]
     Active Substance: GABAPENTIN
  6. ATORVASTATIN [Concomitant]
     Active Substance: ATORVASTATIN
  7. COREG [Concomitant]
     Active Substance: CARVEDILOL

REACTIONS (2)
  - Vascular graft [Recovered/Resolved]
  - Off label use [Recovered/Resolved]

NARRATIVE: CASE EVENT DATE: 20160715
